FAERS Safety Report 5209991-2 (Version None)
Quarter: 2006Q4

REPORT INFORMATION
  Report Type: 
  Country: None (occurrence: None)
  Receive Date: 20061130
  Receipt Date: 20051207
  Transmission Date: 20070319
  Serious: No
  Sender: FDA-Public Use
  Company Number: 2005AC01951

PATIENT
  Age: 47 Year
  Sex: Male

DRUGS (4)
  1. PLENDIL [Suspect]
     Dosage: TAKEN FOR APPROX. 10 YEARS. STOPPED AFTER EVENT ONSET.
  2. TENORMIN [Concomitant]
  3. ALTOCOR [Concomitant]
  4. MULTI-VITAMIN [Concomitant]

REACTIONS (1)
  - GINGIVAL SWELLING [None]
